FAERS Safety Report 5968496-1 (Version None)
Quarter: 2008Q4

REPORT INFORMATION
  Report Type: 
  Country: None (occurrence: None)
  Receive Date: 20081121
  Receipt Date: 20081121
  Transmission Date: 20090506
  Serious: No
  Sender: FDA-Public Use
  Company Number: None

PATIENT
  Age: 73 Year
  Sex: Male
  Weight: 71.2147 kg

DRUGS (2)
  1. ADENOSINE [Suspect]
     Indication: CHEST PAIN
     Route: 058
     Dates: start: 20081018, end: 20081018
  2. TETROFOSMIN TC99M INTERVENIOUSLY GEHEALTHCARE [Suspect]
     Indication: CHEST PAIN
     Dosage: INTERVENIOUSLY
     Route: 042
     Dates: start: 20081018, end: 20081018

REACTIONS (3)
  - CHEST PAIN [None]
  - FLUSHING [None]
  - URTICARIA [None]
